FAERS Safety Report 25017409 (Version 1)
Quarter: 2025Q1

REPORT INFORMATION
  Report Type: Spontaneous
  Country: IE (occurrence: IE)
  Receive Date: 20250227
  Receipt Date: 20250227
  Transmission Date: 20250409
  Serious: Yes (Other)
  Sender: Haleon PLC
  Company Number: None

PATIENT
  Age: 51 Year
  Sex: Female
  Weight: 84 kg

DRUGS (1)
  1. IBUPROFEN [Suspect]
     Active Substance: IBUPROFEN
     Indication: Nasopharyngitis
     Dosage: 2 EVERY 4 TO 6 HOURS.
     Route: 048
     Dates: start: 20250205, end: 20250207

REACTIONS (11)
  - Pharyngeal swelling [Recovered/Resolved]
  - Chest pain [Recovered/Resolved]
  - Condition aggravated [Recovered/Resolved]
  - Musculoskeletal chest pain [Recovered/Resolved]
  - Product substitution issue [Recovered/Resolved]
  - Lung disorder [Recovered/Resolved]
  - Vision blurred [Recovered/Resolved]
  - Dyspnoea [Recovered/Resolved]
  - Photophobia [Recovered/Resolved]
  - Cough [Recovered/Resolved]
  - Headache [Recovered/Resolved]

NARRATIVE: CASE EVENT DATE: 20250205
